FAERS Safety Report 21732172 (Version 1)
Quarter: 2022Q4

REPORT INFORMATION
  Report Type: Spontaneous
  Country: US (occurrence: US)
  Receive Date: 20221215
  Receipt Date: 20221215
  Transmission Date: 20230113
  Serious: Yes (Other)
  Sender: FDA-Public Use
  Company Number: US-HORIZON THERAPEUTICS-HZN-2022-009546

PATIENT

DRUGS (2)
  1. TEPEZZA [Suspect]
     Active Substance: TEPROTUMUMAB-TRBW
     Indication: Endocrine ophthalmopathy
     Dosage: UNK (INFUSION 1)
     Route: 042
     Dates: start: 202011
  2. TEPEZZA [Suspect]
     Active Substance: TEPROTUMUMAB-TRBW
     Indication: Basedow^s disease
     Dosage: UNK (LAST INFUSION)
     Route: 042
     Dates: start: 202106

REACTIONS (11)
  - Deafness permanent [Unknown]
  - Disability [Unknown]
  - Tinnitus [Unknown]
  - Injury [Unknown]
  - Pain [Unknown]
  - Anxiety [Unknown]
  - Concomitant disease aggravated [Unknown]
  - Emotional distress [Unknown]
  - Economic problem [Unknown]
  - Discomfort [Unknown]
  - Physical disability [Unknown]
